FAERS Safety Report 9234397 (Version 1)
Quarter: 2013Q2

REPORT INFORMATION
  Report Type: Spontaneous
  Country: US (occurrence: US)
  Receive Date: 20130416
  Receipt Date: 20130416
  Transmission Date: 20140414
  Serious: Yes (Hospitalization)
  Sender: FDA-Public Use
  Company Number: US-GLAXOSMITHKLINE-A0713046A

PATIENT
  Age: 76 Year
  Sex: Male
  Weight: 100 kg

DRUGS (11)
  1. AVANDIA [Suspect]
     Indication: TYPE 2 DIABETES MELLITUS
     Dosage: 8MG PER DAY
     Route: 048
     Dates: start: 2002, end: 2006
  2. METFORMIN [Concomitant]
  3. GLUCOTROL [Concomitant]
  4. LASIX [Concomitant]
     Dates: start: 20030206
  5. ELAVIL [Concomitant]
  6. TRILAFON [Concomitant]
  7. ZOCOR [Concomitant]
  8. ALBUTEROL [Concomitant]
  9. SINEMET [Concomitant]
  10. PRILOSEC [Concomitant]
  11. BACLOFEN [Concomitant]

REACTIONS (4)
  - Cerebral infarction [Not Recovered/Not Resolved]
  - Hemiparesis [Unknown]
  - Ischaemia [Unknown]
  - Arteriosclerosis [Unknown]
